FAERS Safety Report 17891536 (Version 10)
Quarter: 2022Q3

REPORT INFORMATION
  Report Type: Report from Study
  Country: US (occurrence: US)
  Receive Date: 20200612
  Receipt Date: 20220831
  Transmission Date: 20221026
  Serious: Yes (Hospitalization, Other)
  Sender: FDA-Public Use
  Company Number: US-INCYTE CORPORATION-2018IN005538

PATIENT

DRUGS (56)
  1. JAKAFI [Suspect]
     Active Substance: RUXOLITINIB
     Indication: Essential thrombocythaemia
     Dosage: 10 MG, BID
     Route: 048
     Dates: start: 20171229
  2. JAKAFI [Suspect]
     Active Substance: RUXOLITINIB
     Indication: Myeloproliferative neoplasm
     Dosage: 10 MG, BID
     Route: 048
     Dates: start: 20180209, end: 20190215
  3. JAKAFI [Suspect]
     Active Substance: RUXOLITINIB
     Dosage: 15 MILLIGRAM, BID
     Route: 065
     Dates: start: 20190215, end: 20190926
  4. JAKAFI [Suspect]
     Active Substance: RUXOLITINIB
     Dosage: 15 MILLIGRAM, QD
     Route: 065
     Dates: start: 20190927, end: 20191115
  5. JAKAFI [Suspect]
     Active Substance: RUXOLITINIB
     Dosage: 15 MILLIGRAM, BID
     Route: 065
     Dates: start: 20191115, end: 20200605
  6. ATORVASTATIN CALCIUM [Concomitant]
     Active Substance: ATORVASTATIN CALCIUM
     Indication: Hyperlipidaemia
     Dosage: UNK
     Route: 065
  7. ATORVASTATIN CALCIUM [Concomitant]
     Active Substance: ATORVASTATIN CALCIUM
     Dosage: 20 MILLIGRAM, QD
     Route: 065
     Dates: start: 1997, end: 20180528
  8. ATORVASTATIN CALCIUM [Concomitant]
     Active Substance: ATORVASTATIN CALCIUM
     Dosage: 80 MG, QD
     Route: 048
     Dates: start: 20180529
  9. PANTOPRAZOLE SODIUM [Concomitant]
     Active Substance: PANTOPRAZOLE SODIUM
     Indication: Product used for unknown indication
     Dosage: UNK
     Route: 065
  10. PANTOPRAZOLE SODIUM [Concomitant]
     Active Substance: PANTOPRAZOLE SODIUM
     Dosage: 40 MG, QD
     Route: 048
  11. AMLODIPINE BESYLATE [Concomitant]
     Active Substance: AMLODIPINE BESYLATE
     Indication: Hypertension
     Dosage: 5 MILLIGRAM, QD
     Route: 065
     Dates: start: 20181029
  12. AMLODIPINE BESYLATE [Concomitant]
     Active Substance: AMLODIPINE BESYLATE
     Dosage: 10 MG, QD
     Route: 048
  13. CARVEDILOL [Concomitant]
     Active Substance: CARVEDILOL
     Indication: Hypertension
     Dosage: 15 MILLIGRAM, BID
     Route: 065
     Dates: start: 20180615, end: 20200605
  14. CARVEDILOL [Concomitant]
     Active Substance: CARVEDILOL
     Dosage: 75 MG, QD
     Route: 048
  15. CARVEDILOL [Concomitant]
     Active Substance: CARVEDILOL
     Dosage: 12.5 MILLIGRAM, BID
     Route: 065
     Dates: start: 20180615, end: 20180917
  16. HYDROCHLOROTHIAZIDE [Concomitant]
     Active Substance: HYDROCHLOROTHIAZIDE
     Indication: Product used for unknown indication
     Dosage: UNK
     Route: 065
  17. HYDROCHLOROTHIAZIDE [Concomitant]
     Active Substance: HYDROCHLOROTHIAZIDE
     Dosage: 12.5 MG, QD
     Route: 048
  18. LOSARTAN POTASSIUM [Concomitant]
     Active Substance: LOSARTAN POTASSIUM
     Indication: Hypertension
     Dosage: 50 MG, QD
     Route: 048
     Dates: start: 1997, end: 20181028
  19. LOSARTAN POTASSIUM [Concomitant]
     Active Substance: LOSARTAN POTASSIUM
     Dosage: 50 MG, QD
     Route: 048
     Dates: start: 20181029
  20. VITAMIN D3 [Concomitant]
     Active Substance: CHOLECALCIFEROL
     Indication: Product used for unknown indication
     Dosage: UNK
     Route: 065
  21. VITAMIN D3 [Concomitant]
     Active Substance: CHOLECALCIFEROL
     Dosage: 2000 IU, QD
     Route: 048
  22. CLOPIDOGREL BISULFATE [Concomitant]
     Active Substance: CLOPIDOGREL BISULFATE
     Indication: Arteriosclerosis coronary artery
     Dosage: 75 MILLIGRAM, QD
     Route: 065
     Dates: start: 1997, end: 202005
  23. CLOPIDOGREL BISULFATE [Concomitant]
     Active Substance: CLOPIDOGREL BISULFATE
     Dosage: 75 MILLIGRAM, QD
     Route: 065
     Dates: start: 20200615
  24. FAMOTIDINE [Concomitant]
     Active Substance: FAMOTIDINE
     Indication: Gastrooesophageal reflux disease
     Dosage: 20 MILLIGRAM, BID
     Route: 065
     Dates: start: 1997
  25. ASPIRIN [Concomitant]
     Active Substance: ASPIRIN
     Indication: Essential thrombocythaemia
     Dosage: 81 MILLIGRAM, QD
     Route: 065
     Dates: start: 20171214
  26. NIFEDIPINE [Concomitant]
     Active Substance: NIFEDIPINE
     Indication: Hypertension
     Dosage: 60 MILLIGRAM, BID
     Route: 065
     Dates: start: 1997, end: 20181029
  27. METOPROLOL SUCCINATE [Concomitant]
     Active Substance: METOPROLOL SUCCINATE
     Indication: Hypertension
     Dosage: 50 MILLIGRAM, BID
     Route: 065
     Dates: start: 1997, end: 20180615
  28. METOPROLOL SUCCINATE [Concomitant]
     Active Substance: METOPROLOL SUCCINATE
     Dosage: 50 MILLIGRAM, QD
     Route: 065
     Dates: start: 20180917, end: 202002
  29. HYDROXYUREA [Concomitant]
     Active Substance: HYDROXYUREA
     Indication: Essential thrombocythaemia
     Dosage: 500 MILLIGRAM, BID
     Route: 065
     Dates: start: 20171229, end: 20180209
  30. HYDROXYUREA [Concomitant]
     Active Substance: HYDROXYUREA
     Dosage: 500 MILLIGRAM, BID
     Route: 065
     Dates: start: 20200605, end: 20200610
  31. HYDROXYUREA [Concomitant]
     Active Substance: HYDROXYUREA
     Dosage: 500 MILLIGRAM, QD
     Route: 065
     Dates: start: 20200610
  32. ONDANSETRON [Concomitant]
     Active Substance: ONDANSETRON
     Indication: Prophylaxis of nausea and vomiting
     Dosage: 4 MILLIGRAM, PRN
     Route: 065
     Dates: start: 20180103
  33. RANEXA [Concomitant]
     Active Substance: RANOLAZINE
     Indication: Angina pectoris
     Dosage: 500 MILLIGRAM, BID
     Route: 065
     Dates: start: 20180529, end: 20181220
  34. HEPARIN [Concomitant]
     Active Substance: HEPARIN SODIUM
     Indication: Myocardial infarction
     Dosage: 4000 UNITS
     Route: 065
     Dates: start: 20190201, end: 20190201
  35. HEPARIN [Concomitant]
     Active Substance: HEPARIN SODIUM
     Indication: Angina unstable
     Dosage: 500 MILLILITER
     Route: 065
     Dates: start: 20190201, end: 20190202
  36. HEPARIN [Concomitant]
     Active Substance: HEPARIN SODIUM
     Dosage: 5000 UNITS
     Route: 065
     Dates: start: 20200617, end: 20200618
  37. HEPARIN [Concomitant]
     Active Substance: HEPARIN SODIUM
     Dosage: 2500/500ML (2500 MG)
     Route: 065
     Dates: start: 20200615, end: 20200616
  38. HEPARIN [Concomitant]
     Active Substance: HEPARIN SODIUM
     Dosage: 10,000 UNITS
     Route: 065
     Dates: start: 20200616, end: 20200616
  39. HEPARIN [Concomitant]
     Active Substance: HEPARIN SODIUM
     Dosage: 4000 UNITS
     Route: 065
     Dates: start: 20200616, end: 20200616
  40. SODIUM CHLORIDE [Concomitant]
     Active Substance: SODIUM CHLORIDE
     Indication: Myocardial infarction
     Dosage: 75 MILLILITER
     Route: 065
     Dates: start: 20190202, end: 20190203
  41. LIDOCAINE [Concomitant]
     Active Substance: LIDOCAINE
     Indication: Myocardial infarction
     Dosage: 20 MILLILITER (1%)
     Route: 065
     Dates: start: 20190202, end: 20190202
  42. LIDOCAINE HYDROCHLORIDE AND EPINEPHRINE [Concomitant]
     Active Substance: EPINEPHRINE\LIDOCAINE HYDROCHLORIDE
     Indication: Myocardial infarction
     Dosage: 20 MILLILITER
     Route: 065
     Dates: start: 20190202, end: 20190202
  43. FENTANYL [Concomitant]
     Active Substance: FENTANYL
     Indication: Myocardial infarction
     Dosage: 0.1 MILLIGRAM
     Route: 065
     Dates: start: 20190202, end: 20190202
  44. NITROGLYCERIN [Concomitant]
     Active Substance: NITROGLYCERIN
     Indication: Myocardial infarction
     Dosage: 0.1 MILLIGRAM
     Route: 065
     Dates: start: 20190202, end: 20190202
  45. NITROGLYCERIN [Concomitant]
     Active Substance: NITROGLYCERIN
     Indication: Angina pectoris
     Dosage: 0.4 MILLIGRAM PRN
     Route: 065
     Dates: start: 20200614
  46. OXYGEN [Concomitant]
     Active Substance: OXYGEN
     Indication: Myocardial infarction
     Dosage: 5 LITER
     Route: 065
     Dates: start: 20190202, end: 20190202
  47. MIDAZOLAM [Concomitant]
     Active Substance: MIDAZOLAM
     Indication: Myocardial infarction
     Dosage: 2 MILLIGRAM
     Route: 065
     Dates: start: 20190202, end: 20190202
  48. LABETALOL [Concomitant]
     Active Substance: LABETALOL\LABETALOL HYDROCHLORIDE
     Indication: Angina unstable
     Dosage: 10 MILLIGRAM
     Route: 065
     Dates: start: 20200615, end: 20200615
  49. ACETAMINOPHEN [Concomitant]
     Active Substance: ACETAMINOPHEN
     Indication: Pain prophylaxis
     Dosage: 650 MILLIGRAM, PRN
     Route: 065
     Dates: start: 20200615
  50. MAGNESIUM OXIDE [Concomitant]
     Active Substance: MAGNESIUM OXIDE
     Indication: Prophylaxis
     Dosage: 800 MILLIGRAM
     Route: 065
     Dates: start: 20200615, end: 20200615
  51. MAGNESIUM OXIDE [Concomitant]
     Active Substance: MAGNESIUM OXIDE
     Indication: Hypomagnesaemia
  52. SODIUM CHLORIDE [Concomitant]
     Active Substance: SODIUM CHLORIDE
     Indication: Angina unstable
     Dosage: 75 MILLILITER
     Route: 065
     Dates: start: 20200616, end: 20200616
  53. CEMIPLIMAB RWLC [Concomitant]
     Indication: Salivary gland cancer
     Dosage: 350 MILLIGRAM
     Route: 065
     Dates: start: 20220119
  54. DEXAMETHASONE [Concomitant]
     Active Substance: DEXAMETHASONE
     Indication: Premedication
     Dosage: 10 MILLIGRAM
     Route: 065
     Dates: start: 20220119, end: 20220216
  55. DEXAMETHASONE [Concomitant]
     Active Substance: DEXAMETHASONE
     Dosage: 4 MILLIGRAM
     Route: 065
     Dates: start: 20220302
  56. AMLODIPINE [Concomitant]
     Active Substance: AMLODIPINE BESYLATE
     Indication: Hypertension
     Dosage: 10 MILLIGRAM, QD
     Route: 065
     Dates: start: 20220302

REACTIONS (10)
  - Skin cancer [Recovered/Resolved]
  - Chest pain [Recovered/Resolved]
  - Hypothyroidism [Not Recovered/Not Resolved]
  - Hypokalaemia [Recovered/Resolved]
  - Anaemia [Recovered/Resolved]
  - Anaemia [Not Recovered/Not Resolved]
  - Post herpetic neuralgia [Recovered/Resolved]
  - Diarrhoea [Recovered/Resolved]
  - Anaemia [Recovered/Resolved]
  - Anaemia [Not Recovered/Not Resolved]

NARRATIVE: CASE EVENT DATE: 20180528
